FAERS Safety Report 23602878 (Version 2)
Quarter: 2025Q3

REPORT INFORMATION
  Report Type: Spontaneous
  Country: EU (occurrence: EU)
  Receive Date: 20240306
  Receipt Date: 20250918
  Transmission Date: 20251021
  Serious: Yes (Death, Other)
  Sender: SANDOZ
  Company Number: EU-ASPEN-GLO2024IT000933

PATIENT
  Age: 42 Year
  Sex: Male

DRUGS (19)
  1. BUSULFAN [Suspect]
     Active Substance: BUSULFAN
     Indication: Hepatosplenic T-cell lymphoma
     Dosage: 3.2 MG/KG, QD
     Route: 065
     Dates: start: 2023, end: 2023
  2. BUSULFAN [Suspect]
     Active Substance: BUSULFAN
     Indication: Allogenic stem cell transplantation
  3. BUSULFAN [Suspect]
     Active Substance: BUSULFAN
     Indication: Bone marrow conditioning regimen
  4. CYCLOSPORINE [Suspect]
     Active Substance: CYCLOSPORINE
     Indication: Prophylaxis against graft versus host disease
     Route: 065
  5. FLUDARABINE [Suspect]
     Active Substance: FLUDARABINE PHOSPHATE
     Indication: Hepatosplenic T-cell lymphoma
     Dosage: 50 MG/M2, QD, CONDITIONING REGIMEN DAY 5 AND DAY 3
     Route: 065
     Dates: start: 2023, end: 2023
  6. FLUDARABINE [Suspect]
     Active Substance: FLUDARABINE PHOSPHATE
     Indication: Allogenic stem cell transplantation
  7. FLUDARABINE [Suspect]
     Active Substance: FLUDARABINE PHOSPHATE
     Indication: Bone marrow conditioning regimen
  8. METHOTREXATE [Suspect]
     Active Substance: METHOTREXATE
     Indication: Hepatosplenic T-cell lymphoma
     Route: 065
  9. METHOTREXATE [Suspect]
     Active Substance: METHOTREXATE
     Indication: Prophylaxis against graft versus host disease
  10. THIOTEPA [Suspect]
     Active Substance: THIOTEPA
     Indication: Hepatosplenic T-cell lymphoma
     Dosage: 5 MG/KG, QD DAY 7 AND 6
     Route: 065
     Dates: start: 2023, end: 2023
  11. THIOTEPA [Suspect]
     Active Substance: THIOTEPA
     Indication: Allogenic stem cell transplantation
  12. THIOTEPA [Suspect]
     Active Substance: THIOTEPA
     Indication: Bone marrow conditioning regimen
  13. THYMOGLOBULINE [Suspect]
     Active Substance: LAPINE T-LYMPHOCYTE IMMUNE GLOBULIN
     Indication: Prophylaxis against graft versus host disease
     Route: 065
  14. CYTARABINE [Concomitant]
     Active Substance: CYTARABINE
     Indication: Hepatosplenic T-cell lymphoma
     Route: 065
  15. DECADRON [Concomitant]
     Active Substance: DEXAMETHASONE
     Indication: Hepatosplenic T-cell lymphoma
     Route: 065
  16. ELOXATIN [Concomitant]
     Active Substance: OXALIPLATIN
     Indication: Hepatosplenic T-cell lymphoma
     Route: 065
  17. ETOPOSIDE [Concomitant]
     Active Substance: ETOPOSIDE
     Indication: Hepatosplenic T-cell lymphoma
     Route: 065
  18. IFOSFAMIDE [Concomitant]
     Active Substance: IFOSFAMIDE
     Indication: Hepatosplenic T-cell lymphoma
     Route: 065
  19. PARAPLATIN [Concomitant]
     Active Substance: CARBOPLATIN
     Indication: Hepatosplenic T-cell lymphoma
     Route: 065

REACTIONS (9)
  - Acute graft versus host disease [Fatal]
  - Vanishing bile duct syndrome [Fatal]
  - Off label use [Fatal]
  - Acute graft versus host disease in liver [Unknown]
  - Acute graft versus host disease in skin [Recovered/Resolved]
  - Pyrexia [Recovered/Resolved]
  - Renal impairment [Unknown]
  - Bacterial test positive [Recovered/Resolved]
  - Pseudomonas infection [Recovered/Resolved]
